FAERS Safety Report 4503346-1 (Version None)
Quarter: 2004Q4

REPORT INFORMATION
  Report Type: 
  Country: None (occurrence: None)
  Receive Date: 20041112
  Receipt Date: 20041029
  Transmission Date: 20050328
  Serious: Yes (Other)
  Sender: FDA-Public Use
  Company Number: 210108

PATIENT
  Age: 52 Year
  Sex: Female

DRUGS (5)
  1. AVASTIN [Suspect]
     Indication: COLORECTAL CANCER METASTATIC
     Dosage: 300 MG, Q2W, INTRAVENOUS
     Route: 042
     Dates: start: 20040616, end: 20041102
  2. OXALIPLATIN (OXALIPLATIN) [Suspect]
     Indication: COLORECTAL CANCER METASTATIC
     Dosage: 120 MG, Q2W, INTRAVENOUS
     Route: 042
     Dates: start: 20040616, end: 20041001
  3. FLUOROURACIL [Concomitant]
  4. LEUCOVORIN CALCIUM [Concomitant]
  5. COUMADIN [Concomitant]

REACTIONS (9)
  - BILIRUBIN CONJUGATED INCREASED [None]
  - BLOOD BILIRUBIN INCREASED [None]
  - BLOOD BILIRUBIN UNCONJUGATED INCREASED [None]
  - BLOOD IMMUNOGLOBULIN G [None]
  - CHROMATURIA [None]
  - COOMBS DIRECT TEST POSITIVE [None]
  - HAEMOLYSIS [None]
  - MENOPAUSE [None]
  - OCULAR ICTERUS [None]
